FAERS Safety Report 6675192-4 (Version None)
Quarter: 2010Q2

REPORT INFORMATION
  Report Type: 
  Country: None (occurrence: None)
  Receive Date: 20100409
  Receipt Date: 20100330
  Transmission Date: 20101027
  Serious: Yes (Other)
  Sender: FDA-Public Use
  Company Number: US-PFIZER INC-2010041151

PATIENT
  Age: 64 Year
  Sex: Female

DRUGS (3)
  1. DILANTIN [Suspect]
  2. LIGNOSPAN [Interacting]
  3. MEPIVACAINE [Interacting]

REACTIONS (6)
  - ANAPHYLACTIC REACTION [None]
  - CHEST PAIN [None]
  - DRUG INTERACTION [None]
  - DYSPNOEA [None]
  - FEELING ABNORMAL [None]
  - MYOCARDIAL INFARCTION [None]
